FAERS Safety Report 19916955 (Version 1)
Quarter: 2021Q4

REPORT INFORMATION
  Report Type: Spontaneous
  Country: US (occurrence: US)
  Receive Date: 20211004
  Receipt Date: 20211004
  Transmission Date: 20220303
  Serious: Yes (Disabling)
  Sender: FDA-Public Use
  Company Number: None

PATIENT
  Age: 32 Year
  Sex: Female
  Weight: 49.9 kg

DRUGS (1)
  1. MIRENA [Suspect]
     Active Substance: LEVONORGESTREL
     Dates: start: 20191118, end: 20210316

REACTIONS (7)
  - Hair texture abnormal [None]
  - Trichorrhexis [None]
  - Skin disorder [None]
  - Pain of skin [None]
  - Pruritus [None]
  - Complication associated with device [None]
  - Adverse drug reaction [None]

NARRATIVE: CASE EVENT DATE: 20191118
